FAERS Safety Report 5363096-9 (Version None)
Quarter: 2007Q2

REPORT INFORMATION
  Report Type: 
  Country: None (occurrence: None)
  Receive Date: 20070615
  Receipt Date: 20070601
  Transmission Date: 20071010
  Serious: Yes (Death, Life-Threatening)
  Sender: FDA-Public Use
  Company Number: 2007JP002081

PATIENT
  Age: 76 Year
  Sex: Female
  Weight: 40 kg

DRUGS (9)
  1. PROGRAF [Suspect]
     Indication: RHEUMATOID ARTHRITIS
     Dosage: SEE IMAGE;
     Dates: start: 20060728, end: 20060810
  2. PROGRAF [Suspect]
     Indication: RHEUMATOID ARTHRITIS
     Dosage: SEE IMAGE;
     Dates: start: 20060811, end: 20060831
  3. PROGRAF [Suspect]
     Indication: RHEUMATOID ARTHRITIS
     Dosage: SEE IMAGE;
     Dates: start: 20060901, end: 20061109
  4. RIMATIL (BUCILLAMINE) FORMULATION UNKNOWN [Suspect]
     Indication: RHEUMATOID ARTHRITIS
     Dosage: 100 MG, UID/QD;
     Dates: start: 20060910, end: 20061109
  5. INDOMETACIN (INDOMETACIN) CAPSULE [Concomitant]
  6. PREDNISOLONE (PREDNISOLONE) FORMULATION [Concomitant]
  7. TAKEPRON (LANSOPRZOLE) FORMULATION UNKNOWN [Concomitant]
  8. FOSAMAC (ALENDRONATE SODIUM) FORMULATION [Concomitant]
  9. BLOPRESS (CANDESARTAN CILEXETIL) FORMULATION [Concomitant]

REACTIONS (6)
  - C-REACTIVE PROTEIN INCREASED [None]
  - CONDITION AGGRAVATED [None]
  - DRUG INEFFECTIVE [None]
  - INTERSTITIAL LUNG DISEASE [None]
  - PNEUMONIA ASPIRATION [None]
  - PNEUMOTHORAX [None]
